FAERS Safety Report 6215104-0 (Version None)
Quarter: 2009Q2

REPORT INFORMATION
  Report Type: 
  Country: None (occurrence: None)
  Receive Date: 20090601
  Receipt Date: 20090202
  Transmission Date: 20091009
  Serious: Yes (Other)
  Sender: FDA-Public Use
  Company Number: 283876

PATIENT
  Age: 57 Year
  Sex: Female
  Weight: 49.9 kg

DRUGS (4)
  1. ACTIVELLA [Suspect]
     Indication: HORMONE THERAPY
     Dosage: 0.1/0.5MG, FOR APPROX. 3 WEEKS, ORAL
     Route: 048
     Dates: start: 20030403, end: 20030401
  2. PREMPRO [Suspect]
     Indication: HORMONE THERAPY
     Dosage: 0.625/5 MG, ORAL, 0.625 MG ORAL
     Route: 048
     Dates: start: 19980101, end: 20020801
  3. PREMPRO [Suspect]
     Indication: HORMONE THERAPY
     Dosage: 0.625/5 MG, ORAL, 0.625 MG ORAL
     Route: 048
     Dates: start: 20020807, end: 20030305
  4. FEMPATCH [Suspect]
     Indication: HORMONE THERAPY
     Dosage: 0.025 MG
     Dates: start: 20000927

REACTIONS (1)
  - BREAST CANCER [None]
